FAERS Safety Report 14231802 (Version 1)
Quarter: 2017Q4

REPORT INFORMATION
  Report Type: Spontaneous
  Country: TN (occurrence: TN)
  Receive Date: 20171128
  Receipt Date: 20171128
  Transmission Date: 20180321
  Serious: Yes (Death, Other)
  Sender: FDA-Public Use
  Company Number: TN-SILVERGATE PHARMACEUTICALS, INC.-2017SIL00020

PATIENT
  Age: 37 Year
  Sex: Female

DRUGS (1)
  1. METHOTREXATE. [Suspect]
     Active Substance: METHOTREXATE
     Indication: ECTOPIC PREGNANCY TERMINATION
     Dosage: 25 MG/KG (2500 MG), ONCE
     Route: 030

REACTIONS (3)
  - Disseminated intravascular coagulation [Unknown]
  - Septic shock [Fatal]
  - Toxicity to various agents [Fatal]
